FAERS Safety Report 8092214-7 (Version None)
Quarter: 2012Q1

REPORT INFORMATION
  Report Type: 
  Country: None (occurrence: None)
  Receive Date: 20120129
  Receipt Date: 20111107
  Transmission Date: 20120608
  Serious: No
  Sender: FDA-Public Use
  Company Number: US-ABBOTT-11P-163-0873137-00

PATIENT
  Sex: Female

DRUGS (1)
  1. HUMIRA [Suspect]
     Indication: ACCIDENTAL EXPOSURE
     Dates: start: 20111107, end: 20111107

REACTIONS (2)
  - ACCIDENTAL EXPOSURE [None]
  - DEVICE MALFUNCTION [None]
